FAERS Safety Report 9178732 (Version 2)
Quarter: 2013Q2

REPORT INFORMATION
  Report Type: Spontaneous
  Country: US (occurrence: US)
  Receive Date: 20130321
  Receipt Date: 20130529
  Transmission Date: 20140414
  Serious: No
  Sender: FDA-Public Use
  Company Number: US-009507513-1303USA008625

PATIENT
  Sex: Male

DRUGS (6)
  1. PEG-INTRON [Suspect]
     Indication: HEPATITIS C
     Dosage: UNK
     Dates: start: 20090101, end: 20090601
  2. PEG-INTRON [Suspect]
     Dosage: REDIPEN
     Dates: start: 20130315
  3. REBETOL [Suspect]
     Indication: HEPATITIS C
     Dosage: UNK
     Route: 048
     Dates: start: 20090101, end: 20090601
  4. REBETOL [Suspect]
     Dosage: UNK
     Route: 048
     Dates: start: 20130315
  5. VICTRELIS [Suspect]
     Indication: HEPATITIS C
     Dosage: 4 DF, TID
     Route: 048
     Dates: start: 20130412, end: 2013
  6. VICTRELIS [Suspect]
     Dosage: 3 DF, BID
     Route: 048
     Dates: start: 2013

REACTIONS (5)
  - Blood count abnormal [Unknown]
  - Drug ineffective [Unknown]
  - Thrombocytopenia [Unknown]
  - Platelet count decreased [Unknown]
  - Therapeutic response decreased [Unknown]
